FAERS Safety Report 16852725 (Version 1)
Quarter: 2019Q3

REPORT INFORMATION
  Report Type: Spontaneous
  Country: CN (occurrence: CN)
  Receive Date: 20190925
  Receipt Date: 20190925
  Transmission Date: 20191005
  Serious: Yes (Other)
  Sender: FDA-Public Use
  Company Number: CN-GLAXOSMITHKLINE-CN2019173613

PATIENT
  Age: 52 Year
  Sex: Male
  Weight: 53 kg

DRUGS (1)
  1. VOLTAREN EMULGEL [Suspect]
     Active Substance: DICLOFENAC DIETHYLAMINE
     Indication: INTERVERTEBRAL DISC DEGENERATION
     Dosage: 1 G, QD
     Route: 058
     Dates: start: 20190918, end: 20190919

REACTIONS (2)
  - Sjogren^s syndrome [Recovered/Resolved]
  - Thoracic vertebral fracture [Recovered/Resolved]

NARRATIVE: CASE EVENT DATE: 20190919
